FAERS Safety Report 18024499 (Version 2)
Quarter: 2020Q3

REPORT INFORMATION
  Report Type: Report from Study
  Country: MX (occurrence: MX)
  Receive Date: 20200714
  Receipt Date: 20200723
  Transmission Date: 20201103
  Serious: Yes (Hospitalization, Other)
  Sender: FDA-Public Use
  Company Number: MX-TAKEDA-2020TUS030388

PATIENT
  Age: 28 Year
  Sex: Male
  Weight: 74 kg

DRUGS (2)
  1. VORTIOXETINE. [Suspect]
     Active Substance: VORTIOXETINE
     Indication: ANXIETY
  2. VORTIOXETINE. [Suspect]
     Active Substance: VORTIOXETINE
     Indication: DEPRESSION
     Dosage: 10 MILLIGRAM, QD
     Route: 048
     Dates: start: 201711

REACTIONS (1)
  - Immune thrombocytopenia [Recovered/Resolved]
